FAERS Safety Report 20920598 (Version 1)
Quarter: 2022Q2

REPORT INFORMATION
  Report Type: Spontaneous
  Country: US (occurrence: None)
  Receive Date: 20220606
  Receipt Date: 20220606
  Transmission Date: 20220721
  Serious: Yes (Hospitalization)
  Sender: FDA-Public Use
  Company Number: None

PATIENT
  Age: 68 Year
  Sex: Male
  Weight: 109 kg

DRUGS (1)
  1. CEFEPIME HYDROCHLORIDE [Suspect]
     Active Substance: CEFEPIME HYDROCHLORIDE
     Indication: Peritonitis
     Dates: start: 20220111, end: 20220113

REACTIONS (5)
  - Septic shock [None]
  - Device related infection [None]
  - Mental status changes [None]
  - Klebsiella infection [None]
  - Enterococcal infection [None]

NARRATIVE: CASE EVENT DATE: 20220113
